FAERS Safety Report 11060670 (Version 1)
Quarter: 2015Q2

REPORT INFORMATION
  Report Type: Spontaneous
  Country: PK (occurrence: PK)
  Receive Date: 20150423
  Receipt Date: 20150423
  Transmission Date: 20150821
  Serious: Yes (Hospitalization)
  Sender: FDA-Public Use
  Company Number: PK-SA-2015SA046688

PATIENT
  Age: 11 Year
  Sex: Female
  Weight: 25 kg

DRUGS (7)
  1. LEVETIRACETAM. [Concomitant]
     Active Substance: LEVETIRACETAM
  2. ETHAMBUTOL [Concomitant]
     Active Substance: ETHAMBUTOL HYDROCHLORIDE
     Indication: TUBERCULOSIS
     Route: 048
  3. PREDNISOLONE. [Concomitant]
     Active Substance: PREDNISOLONE
  4. ISONIAZID. [Suspect]
     Active Substance: ISONIAZID
     Indication: TUBERCULOSIS
     Route: 048
  5. LEVETIRACETAM. [Concomitant]
     Active Substance: LEVETIRACETAM
  6. RIFAMPICIN [Suspect]
     Active Substance: RIFAMPIN
     Indication: TUBERCULOSIS
     Route: 048
  7. PYRAZINAMIDE. [Concomitant]
     Active Substance: PYRAZINAMIDE
     Indication: TUBERCULOSIS
     Route: 048

REACTIONS (9)
  - Lipase increased [Recovered/Resolved]
  - Computerised tomogram abdomen abnormal [Recovered/Resolved]
  - Abdominal tenderness [Recovered/Resolved]
  - Abdominal rigidity [Recovered/Resolved]
  - Amylase increased [Recovered/Resolved]
  - Abdominal pain [Recovered/Resolved]
  - Acute abdomen [Recovered/Resolved]
  - Pancreatitis acute [Recovered/Resolved]
  - Vomiting [Recovered/Resolved]
